FAERS Safety Report 7224688-5 (Version None)
Quarter: 2011Q1

REPORT INFORMATION
  Report Type: 
  Country: None (occurrence: None)
  Receive Date: 20110113
  Receipt Date: 20101224
  Transmission Date: 20110831
  Serious: Yes (Death)
  Sender: FDA-Public Use
  Company Number: JP-GENZYME-FLUD-1000608

PATIENT
  Sex: Female
  Weight: 57 kg

DRUGS (24)
  1. THYMOGLOBULIN [Suspect]
     Dosage: 50 MG, ONCE
     Route: 042
     Dates: start: 20101001
  2. ETOPOSIDE [Concomitant]
     Indication: PREMEDICATION
     Dosage: UNK
     Route: 065
  3. FLUDARA [Suspect]
     Indication: STEM CELL TRANSPLANT
     Dosage: UNK
     Route: 065
     Dates: start: 20100930, end: 20101001
  4. MESNA [Concomitant]
     Indication: PREMEDICATION
     Dosage: UNK
     Route: 065
  5. ACYCLOVIR [Concomitant]
     Indication: ANTIVIRAL PROPHYLAXIS
     Dosage: UNK
     Route: 065
     Dates: start: 20100924, end: 20100926
  6. METHOTREXATE [Concomitant]
     Indication: PREMEDICATION
     Dosage: UNK
     Route: 065
  7. TACROLIMUS [Concomitant]
     Indication: GRAFT VERSUS HOST DISEASE
     Dosage: UNK
     Route: 065
     Dates: start: 20100916, end: 20100927
  8. VORICONAZOLE [Concomitant]
     Indication: ANTIFUNGAL PROPHYLAXIS
     Dosage: UNK
     Route: 065
     Dates: start: 20100924, end: 20100925
  9. MICAFUNGIN SODIUM [Concomitant]
     Dosage: UNK
     Dates: start: 20100924, end: 20100927
  10. THYMOGLOBULIN [Suspect]
     Indication: ACUTE GRAFT VERSUS HOST DISEASE
     Dosage: 50 MG, ONCE
     Dates: start: 20100924
  11. HYDROCORTISONE SODIUM SUCCINATE [Concomitant]
     Indication: PROPHYLAXIS
     Dosage: UNK
     Route: 065
     Dates: start: 20100924, end: 20100924
  12. INSULIN HUMAN [Concomitant]
     Indication: HYPERGLYCAEMIA
     Dosage: UNK
     Route: 065
     Dates: start: 20100924, end: 20100927
  13. METHYLPREDNISOLONE SODIUM SUCCINATE [Concomitant]
     Indication: GRAFT VERSUS HOST DISEASE
     Dosage: UNK
     Route: 065
     Dates: start: 20100924, end: 20100925
  14. DOPAMINE HYDROCHLORIDE [Concomitant]
     Indication: CIRCULATORY COLLAPSE
     Dosage: UNK
     Route: 065
     Dates: start: 20100927, end: 20100927
  15. CYCLOPHOSPHAMIDE [Concomitant]
     Indication: PREMEDICATION
     Dosage: UNK
     Route: 065
  16. ENTECAVIR HYDRATE [Concomitant]
     Indication: HEPATITIS
     Dosage: UNK
     Route: 065
     Dates: start: 20100930, end: 20100930
  17. FILGRASTIM [Concomitant]
     Indication: NEUTROPHIL COUNT DECREASED
     Dosage: UNK
     Route: 065
     Dates: start: 20100924, end: 20100928
  18. THROMBOMODULIN ALFA [Concomitant]
     Indication: DISSEMINATED INTRAVASCULAR COAGULATION
     Dosage: UNK
     Route: 065
     Dates: start: 20100924, end: 20100927
  19. OMEPRAZOLE [Concomitant]
     Indication: PROPHYLAXIS
     Dosage: UNK
     Route: 065
     Dates: start: 20100924, end: 20100927
  20. DORIPENEM HYDRATE [Concomitant]
     Indication: ANTIBIOTIC PROPHYLAXIS
     Dosage: UNK
     Route: 065
     Dates: start: 20100925, end: 20100928
  21. AMPHOTERICIN B [Concomitant]
     Indication: ANTIFUNGAL PROPHYLAXIS
     Dosage: UNK
     Route: 065
     Dates: start: 20101001, end: 20101003
  22. THYMOGLOBULIN [Suspect]
     Dosage: 50 MG, ONCE
     Route: 042
     Dates: start: 20100926
  23. CHLORPHENIRAMINE MALEATE [Concomitant]
     Indication: PREMEDICATION
     Dosage: UNK
     Route: 065
     Dates: start: 20100924, end: 20100929
  24. MEROPENEM TRIHYDRATE [Concomitant]
     Indication: ANTIBIOTIC PROPHYLAXIS
     Dosage: UNK
     Route: 065
     Dates: start: 20100924, end: 20100924

REACTIONS (1)
  - ADULT T-CELL LYMPHOMA/LEUKAEMIA [None]
